FAERS Safety Report 6261095-6 (Version None)
Quarter: 2009Q3

REPORT INFORMATION
  Report Type: 
  Country: None (occurrence: None)
  Receive Date: 20090707
  Receipt Date: 20090623
  Transmission Date: 20100115
  Serious: No
  Sender: FDA-Public Use
  Company Number: 2009AP002533

PATIENT
  Age: 79 Year
  Sex: Female

DRUGS (6)
  1. DILTIAZEM HCL [Suspect]
  2. LISINOPRIL [Concomitant]
  3. ACETYLSALICYLIC ACID [Concomitant]
  4. LOVASTATIN [Concomitant]
  5. HYDROCHLOROTHIAZIDE [Concomitant]
  6. TRIAMTERENE [Concomitant]

REACTIONS (2)
  - RASH [None]
  - SKIN HYPERPIGMENTATION [None]
